FAERS Safety Report 11909281 (Version 2)
Quarter: 2016Q3

REPORT INFORMATION
  Report Type: Spontaneous
  Country: US (occurrence: US)
  Receive Date: 20160112
  Receipt Date: 20160907
  Transmission Date: 20161109
  Serious: Yes (Other)
  Sender: FDA-Public Use
  Company Number: US-TEVA-602192USA

PATIENT
  Sex: Female

DRUGS (4)
  1. SYNTHROID [Concomitant]
     Active Substance: LEVOTHYROXINE SODIUM
  2. ATIVAN [Concomitant]
     Active Substance: LORAZEPAM
  3. ZECUITY [Suspect]
     Active Substance: SUMATRIPTAN SUCCINATE
     Indication: HEADACHE
     Route: 062
     Dates: start: 20151013
  4. NEXIUM [Concomitant]
     Active Substance: ESOMEPRAZOLE MAGNESIUM

REACTIONS (8)
  - Application site erythema [Recovered/Resolved]
  - Device battery issue [Unknown]
  - Application site discolouration [Recovered/Resolved]
  - Drug effect incomplete [Unknown]
  - Product leakage [Unknown]
  - Application site burn [Recovered/Resolved]
  - Application site urticaria [Recovered/Resolved]
  - Application site warmth [Recovered/Resolved]
